FAERS Safety Report 9730974 (Version 1)
Quarter: 2013Q4

REPORT INFORMATION
  Report Type: Spontaneous
  Country: US (occurrence: US)
  Receive Date: 20131203
  Receipt Date: 20131203
  Transmission Date: 20140711
  Serious: Yes (Other)
  Sender: FDA-Public Use
  Company Number: 2013SP003430

PATIENT
  Sex: Male

DRUGS (1)
  1. LUNESTA [Suspect]
     Route: 048

REACTIONS (3)
  - Pyromania [Unknown]
  - Hallucination [Unknown]
  - Middle insomnia [Unknown]
